FAERS Safety Report 6158622-6 (Version None)
Quarter: 2009Q2

REPORT INFORMATION
  Report Type: 
  Country: None (occurrence: None)
  Receive Date: 20090415
  Receipt Date: 20090408
  Transmission Date: 20091009
  Serious: Yes (Other)
  Sender: FDA-Public Use
  Company Number: CHPA2009US08862

PATIENT
  Age: 43 Year
  Sex: Female
  Weight: 57.6 kg

DRUGS (3)
  1. NICOTINE [Suspect]
     Indication: SMOKING CESSATION THERAPY
     Dosage: 21 MG, QD, TRANSDERMAL
     Route: 062
     Dates: start: 20090323, end: 20090407
  2. DILANTIN /CAN/ (PHENYTOIN) [Concomitant]
  3. DOPAMEX [Concomitant]

REACTIONS (8)
  - CHOKING SENSATION [None]
  - CONFUSIONAL STATE [None]
  - CONVULSION [None]
  - DYSPNOEA [None]
  - HALLUCINATION [None]
  - NERVOUSNESS [None]
  - PARANOIA [None]
  - TREATMENT NONCOMPLIANCE [None]
